FAERS Safety Report 7651321-0 (Version None)
Quarter: 2011Q3

REPORT INFORMATION
  Report Type: 
  Country: None (occurrence: None)
  Receive Date: 20110802
  Receipt Date: 20110719
  Transmission Date: 20111222
  Serious: Yes (Hospitalization)
  Sender: FDA-Public Use
  Company Number: PHHY2011FR65656

PATIENT
  Age: 59 Year
  Sex: Female

DRUGS (7)
  1. VALSARTAN [Suspect]
     Indication: HYPERTENSION
     Dosage: 160 MG, QD
     Dates: end: 20110701
  2. ZOCOR [Concomitant]
     Dosage: UNK UKN, UNK
     Dates: end: 20110401
  3. OMEPRAZOLE [Concomitant]
     Dosage: UNK UKN, UNK
  4. EUPRESSYL [Concomitant]
     Dosage: UNK UKN, UNK
  5. VENOFER [Concomitant]
     Dosage: UNK UKN, UNK
  6. LASIX [Concomitant]
     Dosage: UNK UKN, UNK
     Dates: end: 20110701
  7. CINACALCET [Concomitant]
     Dosage: UNK UKN, UNK
     Dates: end: 20110701

REACTIONS (4)
  - HEPATOCELLULAR INJURY [None]
  - LIPASE INCREASED [None]
  - PANCREATITIS [None]
  - ASPARTATE AMINOTRANSFERASE INCREASED [None]
